FAERS Safety Report 8542449-1 (Version None)
Quarter: 2012Q3

REPORT INFORMATION
  Report Type: 
  Country: None (occurrence: None)
  Receive Date: 20120726
  Receipt Date: 20110720
  Transmission Date: 20120928
  Serious: Yes (Hospitalization, Other)
  Sender: FDA-Public Use
  Company Number: US-ASTRAZENECA-2007UW27338

PATIENT
  Age: 43 Year
  Sex: Female
  Weight: 59 kg

DRUGS (9)
  1. NIASPAN [Concomitant]
     Route: 048
     Dates: start: 20060420
  2. DEPAKOTE ER [Concomitant]
     Dates: start: 20060420
  3. PAXIL [Concomitant]
     Route: 048
     Dates: start: 20071002
  4. IMITREX [Concomitant]
     Indication: MIGRAINE
     Dates: start: 20060420
  5. SEROQUEL [Suspect]
     Dosage: 100 MG - 300 MG
     Route: 048
     Dates: start: 20040226
  6. SEROQUEL [Suspect]
     Route: 048
     Dates: start: 20010101, end: 20060101
  7. ASPIRIN [Concomitant]
     Dates: start: 20060420
  8. SEROQUEL [Suspect]
     Indication: HALLUCINATION, AUDITORY
     Route: 048
     Dates: start: 20010101, end: 20060101
  9. ELAVIL [Concomitant]
     Indication: MIGRAINE
     Route: 048
     Dates: start: 19990319

REACTIONS (6)
  - TYPE 2 DIABETES MELLITUS [None]
  - DIABETES MELLITUS INADEQUATE CONTROL [None]
  - ARRHYTHMIA [None]
  - NEURALGIA [None]
  - CARDIAC DISORDER [None]
  - VISION BLURRED [None]
